FAERS Safety Report 20012110 (Version 2)
Quarter: 2021Q4

REPORT INFORMATION
  Report Type: Spontaneous
  Country: US (occurrence: US)
  Receive Date: 20211028
  Receipt Date: 20211122
  Transmission Date: 20220304
  Serious: No
  Sender: FDA-Public Use
  Company Number: US-009507513-2110USA001715

PATIENT
  Age: 58 Year
  Sex: Male

DRUGS (14)
  1. SIVEXTRO [Suspect]
     Active Substance: TEDIZOLID PHOSPHATE
     Indication: Enterococcal infection
     Dosage: 200 MG, EVERY 12 HOURS
     Route: 042
  2. SIVEXTRO [Suspect]
     Active Substance: TEDIZOLID PHOSPHATE
     Indication: Bacteraemia
  3. SIVEXTRO [Suspect]
     Active Substance: TEDIZOLID PHOSPHATE
     Indication: Meningitis
  4. LINEZOLID [Concomitant]
     Active Substance: LINEZOLID
     Indication: Enterococcal infection
  5. TIGECYCLINE [Concomitant]
     Active Substance: TIGECYCLINE
     Indication: Enterococcal infection
     Dosage: 100 MILLIGRAM, Q12H
  6. DALFOPRISTIN;QUINUPRISTIN [Concomitant]
     Indication: Enterococcal infection
     Dosage: 750 MILLIGRAM, Q8H
     Route: 042
  7. DALFOPRISTIN;QUINUPRISTIN [Concomitant]
     Indication: Bacteraemia
  8. DALFOPRISTIN;QUINUPRISTIN [Concomitant]
     Indication: Meningitis
  9. GENTAMICIN [Concomitant]
     Active Substance: GENTAMICIN
     Indication: Bacteraemia
     Dosage: 5 MILLIGRAM/KILOGRAM
     Route: 042
  10. GENTAMICIN [Concomitant]
     Active Substance: GENTAMICIN
     Indication: Enterococcal infection
  11. GENTAMICIN [Concomitant]
     Active Substance: GENTAMICIN
     Indication: Meningitis
  12. AMPICILLIN [Concomitant]
     Active Substance: AMPICILLIN
     Dosage: GIVEN BRIEFLY FOR 3 DAYS AND DISCONTINUED
     Route: 042
  13. ORITAVANCIN [Concomitant]
     Active Substance: ORITAVANCIN
     Dosage: 1200 MILLIGRAM
     Route: 042
  14. BACITRACIN [Concomitant]
     Active Substance: BACITRACIN
     Dosage: 25,000 UNITS EVERY 6 HOURS
     Route: 048

REACTIONS (3)
  - Product use in unapproved indication [Unknown]
  - Inappropriate schedule of product administration [Unknown]
  - Incorrect product administration duration [Unknown]
